FAERS Safety Report 21022802 (Version 1)
Quarter: 2022Q2

REPORT INFORMATION
  Report Type: Spontaneous
  Country: US (occurrence: US)
  Receive Date: 20220629
  Receipt Date: 20220629
  Transmission Date: 20220721
  Serious: No
  Sender: FDA-Public Use
  Company Number: US-PFIZER INC-202200902687

PATIENT
  Age: 47 Year
  Sex: Female

DRUGS (4)
  1. PAXLOVID [Suspect]
     Active Substance: NIRMATRELVIR\RITONAVIR
     Indication: COVID-19 treatment
     Dosage: UNK
     Route: 048
     Dates: start: 20220608, end: 20220612
  2. ESTRADIOL [Concomitant]
     Active Substance: ESTRADIOL
     Dosage: 1 MG, 1X/DAY
     Route: 048
  3. HYDROXYZINE [Concomitant]
     Active Substance: HYDROXYZINE HYDROCHLORIDE
     Dosage: 25 MG, DAILY (AS NEEDED)
  4. VENTOLIN HFA [Concomitant]
     Active Substance: ALBUTEROL SULFATE
     Dosage: UNK UNK, AS NEEDED (INHALED AS NEEDED)

REACTIONS (5)
  - Headache [Recovering/Resolving]
  - Cough [Recovering/Resolving]
  - Fatigue [Recovering/Resolving]
  - Dyspnoea [Recovering/Resolving]
  - Musculoskeletal chest pain [Recovering/Resolving]

NARRATIVE: CASE EVENT DATE: 20220616
